FAERS Safety Report 6164843-9 (Version None)
Quarter: 2009Q2

REPORT INFORMATION
  Report Type: 
  Country: None (occurrence: None)
  Receive Date: 20090423
  Receipt Date: 20090413
  Transmission Date: 20091009
  Serious: Yes (Other)
  Sender: FDA-Public Use
  Company Number: US-AMGEN-KDL338841

PATIENT
  Sex: Female
  Weight: 69.9 kg

DRUGS (6)
  1. ENBREL [Suspect]
     Indication: PSORIATIC ARTHROPATHY
     Route: 058
     Dates: start: 20080908
  2. ENBREL [Suspect]
     Indication: PSORIASIS
  3. ISONIAZID [Suspect]
     Dates: start: 20080814
  4. ANTIBIOTICS [Concomitant]
  5. LEFLUNOMIDE [Concomitant]
  6. RIFAMPIN [Concomitant]

REACTIONS (5)
  - ABDOMINAL PAIN UPPER [None]
  - DIARRHOEA [None]
  - HEPATITIS [None]
  - NAUSEA [None]
  - PRURITUS [None]
